FAERS Safety Report 6900299-3 (Version None)
Quarter: 2010Q3

REPORT INFORMATION
  Report Type: 
  Country: None (occurrence: None)
  Receive Date: 20100803
  Receipt Date: 20100720
  Transmission Date: 20110219
  Serious: Yes (Other)
  Sender: FDA-Public Use
  Company Number: PHHY2010US21157

PATIENT
  Sex: Female

DRUGS (3)
  1. GLEEVEC [Suspect]
     Indication: CHRONIC MYELOID LEUKAEMIA
     Dosage: 800 MG DAILY
     Route: 048
  2. ZOFRAN [Concomitant]
  3. PHENERGAN [Concomitant]

REACTIONS (6)
  - DIARRHOEA [None]
  - DYSPNOEA [None]
  - NAUSEA [None]
  - NERVE INJURY [None]
  - RED BLOOD CELL COUNT DECREASED [None]
  - WHEEZING [None]
